FAERS Safety Report 9882814 (Version 1)
Quarter: 2014Q1

REPORT INFORMATION
  Report Type: Report from Study
  Country: US (occurrence: US)
  Receive Date: 20140207
  Receipt Date: 20140207
  Transmission Date: 20141002
  Serious: Yes (Hospitalization, Other)
  Sender: FDA-Public Use
  Company Number: US-ABBVIE-14P-163-1196226-00

PATIENT
  Age: 54 Year
  Sex: Male
  Weight: 46.31 kg

DRUGS (9)
  1. HUMIRA [Suspect]
     Indication: CROHN^S DISEASE
  2. HUMIRA [Suspect]
  3. HUMIRA [Suspect]
  4. HUMIRA [Suspect]
     Dates: start: 2013
  5. PREDNISONE [Concomitant]
     Indication: CROHN^S DISEASE
  6. NEXIUM [Concomitant]
     Indication: GASTROOESOPHAGEAL REFLUX DISEASE
  7. FOLIC ACID [Concomitant]
     Indication: VITAMIN SUPPLEMENTATION
  8. PENTASA [Concomitant]
     Indication: CROHN^S DISEASE
  9. VITAMINS [Concomitant]
     Indication: VITAMIN SUPPLEMENTATION

REACTIONS (8)
  - Food poisoning [Recovered/Resolved]
  - Campylobacter infection [Recovered/Resolved]
  - Large intestine perforation [Recovered/Resolved]
  - Pyrexia [Recovered/Resolved]
  - Vomiting [Recovered/Resolved]
  - Diarrhoea [Recovered/Resolved]
  - Gastroenteritis [Unknown]
  - Pyrexia [Recovered/Resolved]
